FAERS Safety Report 15126236 (Version 1)
Quarter: 2018Q3

REPORT INFORMATION
  Report Type: Spontaneous
  Country: US (occurrence: US)
  Receive Date: 20180614
  Receipt Date: 20180614
  Transmission Date: 20181010
  Serious: Yes (Hospitalization)
  Sender: FDA-Public Use
  Company Number: None

PATIENT
  Age: 28 Year
  Sex: Male
  Weight: 66.2 kg

DRUGS (2)
  1. CLOZAPINE. [Suspect]
     Active Substance: CLOZAPINE
     Indication: SCHIZOPHRENIA
     Route: 048
     Dates: start: 20180530, end: 20180608
  2. LORAZEPAM 1MG PO QDAY [Concomitant]

REACTIONS (5)
  - Therapy change [None]
  - Nausea [None]
  - Pyrexia [None]
  - Malaise [None]
  - Heart rate increased [None]

NARRATIVE: CASE EVENT DATE: 20180609
